FAERS Safety Report 12971961 (Version 1)
Quarter: 2016Q4

REPORT INFORMATION
  Report Type: Spontaneous
  Country: FR (occurrence: FR)
  Receive Date: 20161124
  Receipt Date: 20161124
  Transmission Date: 20170207
  Serious: Yes (Life-Threatening, Hospitalization, Other)
  Sender: FDA-Public Use
  Company Number: FR-009507513-1611FRA008440

PATIENT
  Age: 76 Year
  Sex: Male

DRUGS (15)
  1. CORTANCYL [Concomitant]
     Active Substance: PREDNISONE
     Dosage: 17.5 MG, QD
  2. TAHOR [Concomitant]
     Active Substance: ATORVASTATIN CALCIUM
     Dosage: 10 MG, QD
  3. XATRAL [Concomitant]
     Active Substance: ALFUZOSIN
     Dosage: 10 MG, QD
  4. NEORAL [Concomitant]
     Active Substance: CYCLOSPORINE
     Dosage: 150 MG, BID
  5. MYFORTIC [Concomitant]
     Active Substance: MYCOPHENOLATE SODIUM
     Dosage: 720 MG, BID
  6. INEXIUM (ESOMEPRAZOLE MAGNESIUM) [Concomitant]
     Active Substance: ESOMEPRAZOLE MAGNESIUM
     Dosage: 20 MG, QD
  7. INVANZ [Suspect]
     Active Substance: ERTAPENEM SODIUM
     Indication: PYELONEPHRITIS
     Dosage: 1 DF, QD
     Route: 042
     Dates: start: 20160907, end: 20160914
  8. ARANESP [Concomitant]
     Active Substance: DARBEPOETIN ALFA
     Dosage: 50 MICROGRAM, QW
  9. LANTUS [Concomitant]
     Active Substance: INSULIN GLARGINE
     Dosage: 18 IU, QD
  10. NOVORAPID [Concomitant]
     Active Substance: INSULIN ASPART
  11. INVANZ [Suspect]
     Active Substance: ERTAPENEM SODIUM
     Dosage: 500 MG, QD
     Route: 042
     Dates: start: 20160915, end: 20160916
  12. BACTRIM [Concomitant]
     Active Substance: SULFAMETHOXAZOLE\TRIMETHOPRIM
     Dosage: 3 DF, QW
  13. ZYMAD [Concomitant]
     Active Substance: CHOLECALCIFEROL
     Dosage: 1 AMPOULE PER 3 MONTHS
  14. COUMADIN [Concomitant]
     Active Substance: WARFARIN SODIUM
     Dosage: 8 MG, QD
  15. SODIUM BICARBONATE. [Concomitant]
     Active Substance: SODIUM BICARBONATE
     Dosage: 1500 MG, TID

REACTIONS (2)
  - Tonic clonic movements [Recovered/Resolved with Sequelae]
  - Cardio-respiratory arrest [Recovered/Resolved with Sequelae]

NARRATIVE: CASE EVENT DATE: 20160912
